FAERS Safety Report 8025725-0 (Version None)
Quarter: 2012Q1

REPORT INFORMATION
  Report Type: 
  Country: None (occurrence: None)
  Receive Date: 20120105
  Receipt Date: 20110105
  Transmission Date: 20120608
  Serious: Yes (Other)
  Sender: FDA-Public Use
  Company Number: US-ABBOTT-11P-163-0695281-00

PATIENT
  Sex: Female
  Weight: 74.456 kg

DRUGS (3)
  1. IRON SUPPLEMENT [Concomitant]
     Indication: MINERAL SUPPLEMENTATION
  2. SYNTHROID [Suspect]
     Indication: THYROID CANCER
     Dates: start: 20090901
  3. METFORMIN HCL [Concomitant]
     Indication: POLYCYSTIC OVARIES

REACTIONS (3)
  - THYROID CANCER METASTATIC [None]
  - METABOLIC DISORDER [None]
  - WEIGHT INCREASED [None]
